FAERS Safety Report 10255954 (Version 2)
Quarter: 2014Q3

REPORT INFORMATION
  Report Type: Spontaneous
  Country: US (occurrence: US)
  Receive Date: 20140624
  Receipt Date: 20140710
  Transmission Date: 20150326
  Serious: Yes (Hospitalization)
  Sender: FDA-Public Use
  Company Number: US-GLAXOSMITHKLINE-A1078265A

PATIENT
  Age: 72 Year
  Sex: Male

DRUGS (3)
  1. TAFINLAR [Suspect]
     Active Substance: DABRAFENIB MESYLATE
     Indication: PRODUCT USED FOR UNKNOWN INDICATION
     Dosage: 75MG UNKNOWN
     Route: 065
  2. MEKINIST [Suspect]
     Active Substance: TRAMETINIB DIMETHYL SULFOXIDE
     Indication: PRODUCT USED FOR UNKNOWN INDICATION
     Dosage: 2MG UNKNOWN
     Route: 065
  3. RADIATION [Concomitant]
     Active Substance: RADIATION THERAPY

REACTIONS (4)
  - Emergency care examination [Unknown]
  - Tumour excision [Unknown]
  - Lymphadenectomy [Unknown]
  - Parotidectomy [Unknown]

NARRATIVE: CASE EVENT DATE: 20131015
